FAERS Safety Report 4381078-0 (Version None)
Quarter: 2004Q2

REPORT INFORMATION
  Report Type: 
  Country: None (occurrence: None)
  Receive Date: 20040601
  Receipt Date: 20040210
  Transmission Date: 20050107
  Serious: No
  Sender: FDA-Public Use
  Company Number: FABR-10473

PATIENT
  Age: 48 Year
  Sex: Female
  Weight: 131.9967 kg

DRUGS (8)
  1. FABRAZYME [Suspect]
     Indication: FABRY'S DISEASE
     Dosage: 132 MG IV
     Route: 042
     Dates: start: 20040210
  2. ZAROXOLYN [Concomitant]
  3. ATENOLOL [Concomitant]
  4. POTASSIUM [Concomitant]
  5. COLCHICINE [Concomitant]
  6. ALLOPURINOL [Concomitant]
  7. PROZAC [Concomitant]
  8. TYLENOL [Concomitant]

REACTIONS (1)
  - SOMNOLENCE [None]
